FAERS Safety Report 5249216-5 (Version None)
Quarter: 2007Q1

REPORT INFORMATION
  Report Type: 
  Country: None (occurrence: None)
  Receive Date: 20070228
  Receipt Date: 20070221
  Transmission Date: 20070707
  Serious: Yes (Other)
  Sender: FDA-Public Use
  Company Number: 2007UW03526

PATIENT
  Sex: Female

DRUGS (4)
  1. ENTOCORT [Suspect]
     Indication: CROHN'S DISEASE
     Route: 048
     Dates: start: 20020101
  2. CLONIDINE [Concomitant]
     Indication: HOT FLUSH
     Route: 048
  3. CELEBREX [Concomitant]
     Route: 048
     Dates: start: 20061101
  4. ANTIFUNGAL [Concomitant]
     Indication: FUNGAL INFECTION

REACTIONS (2)
  - BLOOD GLUCOSE INCREASED [None]
  - FUNGAL INFECTION [None]
